FAERS Safety Report 11918071 (Version 3)
Quarter: 2016Q1

REPORT INFORMATION
  Report Type: Report from Study
  Country: AT (occurrence: AT)
  Receive Date: 20160114
  Receipt Date: 20160310
  Transmission Date: 20160526
  Serious: Yes (Hospitalization)
  Sender: FDA-Public Use
  Company Number: AT-GILEAD-2016-0191931

PATIENT
  Sex: Male
  Weight: 70 kg

DRUGS (26)
  1. RITUXIMAB [Suspect]
     Active Substance: RITUXIMAB
     Dosage: 713 MG, Q1WK
     Route: 042
     Dates: start: 20151119, end: 20151119
  2. DIPHENHYDRAMINE. [Concomitant]
     Active Substance: DIPHENHYDRAMINE
     Dosage: UNK
     Route: 042
     Dates: start: 20151223, end: 20151223
  3. RITUXIMAB [Suspect]
     Active Substance: RITUXIMAB
     Dosage: 713 MG, Q1WK
     Route: 042
     Dates: start: 20151203, end: 20151203
  4. DIPHENHYDRAMINE. [Concomitant]
     Active Substance: DIPHENHYDRAMINE
     Route: 042
     Dates: start: 20160107, end: 20160107
  5. PARACETAMOL [Concomitant]
     Active Substance: ACETAMINOPHEN
     Dosage: UNK
     Route: 048
     Dates: start: 20151223, end: 20151223
  6. PARACETAMOL [Concomitant]
     Active Substance: ACETAMINOPHEN
     Dosage: UNK
     Route: 048
     Dates: start: 20151217, end: 20151217
  7. RINGER^S SOLUTION                  /03112001/ [Concomitant]
     Indication: FLUID REPLACEMENT
     Dosage: UNK
     Route: 042
     Dates: start: 20151210, end: 20151210
  8. RITUXIMAB [Suspect]
     Active Substance: RITUXIMAB
     Dosage: 713 MG, Q1WK
     Route: 042
     Dates: start: 20151126, end: 20151126
  9. DIPHENHYDRAMINE. [Concomitant]
     Active Substance: DIPHENHYDRAMINE
     Indication: RASH
     Dosage: UNK
     Route: 048
     Dates: start: 20151204
  10. RINGER^S SOLUTION                  /03112001/ [Concomitant]
     Indication: PREMEDICATION
     Dosage: UNK
     Route: 042
     Dates: start: 20151217, end: 20151217
  11. SOLU DACORTIN [Concomitant]
     Indication: PREMEDICATION
     Route: 042
     Dates: start: 20151210, end: 20151210
  12. ACLIDINIUM BROMIDE [Concomitant]
     Active Substance: ACLIDINIUM BROMIDE
     Indication: CHRONIC OBSTRUCTIVE PULMONARY DISEASE
     Route: 055
  13. IDELALISIB [Suspect]
     Active Substance: IDELALISIB
     Indication: CHRONIC LYMPHOCYTIC LEUKAEMIA
     Dosage: 150 MG, UNK
     Route: 048
     Dates: start: 20151112, end: 20160104
  14. RITUXIMAB [Suspect]
     Active Substance: RITUXIMAB
     Dosage: 713 MG, Q1WK
     Route: 042
     Dates: start: 20151217, end: 20151217
  15. DIPHENHYDRAMINE. [Concomitant]
     Active Substance: DIPHENHYDRAMINE
     Indication: RASH GENERALISED
     Dosage: UNK
     Route: 042
     Dates: start: 20151217, end: 20151217
  16. RITUXIMAB [Suspect]
     Active Substance: RITUXIMAB
     Indication: CHRONIC LYMPHOCYTIC LEUKAEMIA
     Dosage: 713 MG, Q1WK
     Route: 042
     Dates: start: 20151112, end: 20151113
  17. RITUXIMAB [Suspect]
     Active Substance: RITUXIMAB
     Dosage: 713 MG, Q1WK
     Route: 042
     Dates: start: 20151210, end: 20151210
  18. RITUXIMAB [Suspect]
     Active Substance: RITUXIMAB
     Dosage: 713 MG, Q1WK
     Route: 042
     Dates: start: 20151223, end: 20151223
  19. PARACETAMOL [Concomitant]
     Active Substance: ACETAMINOPHEN
     Dosage: UNK
     Route: 048
     Dates: start: 20151229, end: 20151229
  20. RINGER^S SOLUTION                  /03112001/ [Concomitant]
     Dosage: UNK
     Route: 042
     Dates: start: 20151223, end: 20151223
  21. DIPHENHYDRAMINE. [Concomitant]
     Active Substance: DIPHENHYDRAMINE
     Dosage: UNK
     Route: 042
     Dates: start: 20151229, end: 20151229
  22. RINGER^S SOLUTION                  /03112001/ [Concomitant]
     Dosage: UNK
     Route: 042
     Dates: start: 20151229, end: 20151229
  23. RITUXIMAB [Suspect]
     Active Substance: RITUXIMAB
     Dosage: 713 MG, Q1WK
     Route: 042
     Dates: start: 20151229, end: 20151229
  24. DIPHENHYDRAMINE. [Concomitant]
     Active Substance: DIPHENHYDRAMINE
     Indication: RASH
     Dosage: UNK
     Route: 042
     Dates: start: 20151210, end: 20151210
  25. DIPHENHYDRAMINE. [Concomitant]
     Active Substance: DIPHENHYDRAMINE
     Route: 042
     Dates: start: 20160106, end: 20160106
  26. PARACETAMOL [Concomitant]
     Active Substance: ACETAMINOPHEN
     Dosage: UNK
     Route: 048
     Dates: start: 20151210, end: 20151210

REACTIONS (1)
  - Eczema [Recovered/Resolved]

NARRATIVE: CASE EVENT DATE: 20160107
